FAERS Safety Report 9470546 (Version 1)
Quarter: 2013Q3

REPORT INFORMATION
  Report Type: Spontaneous
  Country: US (occurrence: US)
  Receive Date: 20130822
  Receipt Date: 20130822
  Transmission Date: 20140515
  Serious: Yes (Hospitalization, Other)
  Sender: FDA-Public Use
  Company Number: US-PFIZER INC-2013242104

PATIENT
  Age: 66 Year
  Sex: Female

DRUGS (1)
  1. LYRICA [Suspect]
     Indication: FIBROMYALGIA
     Dosage: 150 MG, 2X/DAY
     Route: 048
     Dates: start: 2012, end: 201307

REACTIONS (12)
  - Fall [Unknown]
  - Abasia [Unknown]
  - Wheelchair user [Unknown]
  - Bedridden [Unknown]
  - Ankle fracture [Unknown]
  - Dehydration [Unknown]
  - Muscle spasms [Unknown]
  - Nasopharyngitis [Unknown]
  - Pain in extremity [Unknown]
  - Pain [Unknown]
  - Malaise [Unknown]
  - Influenza like illness [Unknown]
